FAERS Safety Report 11341758 (Version 1)
Quarter: 2015Q3

REPORT INFORMATION
  Report Type: Spontaneous
  Country: US (occurrence: US)
  Receive Date: 20150805
  Receipt Date: 20150805
  Transmission Date: 20151125
  Serious: No
  Sender: FDA-Public Use
  Company Number: US-HORIZON-PEN-0128-2015

PATIENT
  Age: 68 Year
  Sex: Female

DRUGS (1)
  1. PENNSAID [Suspect]
     Active Substance: DICLOFENAC SODIUM
     Indication: MYALGIA
     Dosage: 1 PUMP TWICE DAILY (MORNING AND NIGHT)

REACTIONS (2)
  - Prescribed underdose [Unknown]
  - Off label use [Not Recovered/Not Resolved]
